FAERS Safety Report 8475482-9 (Version None)
Quarter: 2012Q2

REPORT INFORMATION
  Report Type: 
  Country: None (occurrence: None)
  Receive Date: 20120628
  Receipt Date: 20120619
  Transmission Date: 20120825
  Serious: Yes (Hospitalization)
  Sender: FDA-Public Use
  Company Number: FR-ABBOTT-12P-056-0947914-00

PATIENT
  Age: 50 Year
  Sex: Male

DRUGS (16)
  1. ZOLPIDEM [Concomitant]
     Indication: PRODUCT USED FOR UNKNOWN INDICATION
  2. PLAVIX [Concomitant]
     Indication: PRODUCT USED FOR UNKNOWN INDICATION
  3. LEXOMIL [Concomitant]
     Indication: PRODUCT USED FOR UNKNOWN INDICATION
  4. ACEPROMETAZINE W/MEPROBAMATE [Suspect]
     Indication: PRODUCT USED FOR UNKNOWN INDICATION
     Dosage: 2 DOSAGE FORMS DAILY
     Route: 048
     Dates: end: 20120128
  5. NICOTINE [Concomitant]
     Indication: PRODUCT USED FOR UNKNOWN INDICATION
  6. ACETAMINOPHEN AND CODEINE PHOSPHATE [Concomitant]
     Indication: PRODUCT USED FOR UNKNOWN INDICATION
  7. ATORVASTATIN [Concomitant]
     Indication: PRODUCT USED FOR UNKNOWN INDICATION
  8. VALPROIC ACID [Suspect]
     Indication: EPILEPSY
     Route: 048
  9. PHENOBARBITAL TAB [Suspect]
     Route: 048
     Dates: start: 20120203, end: 20120204
  10. PHENOBARBITAL TAB [Suspect]
     Route: 048
     Dates: start: 20041201, end: 20120131
  11. PYRIDOXINE W/THIAMINE [Concomitant]
     Indication: PRODUCT USED FOR UNKNOWN INDICATION
  12. VENTOLIN [Concomitant]
     Indication: PRODUCT USED FOR UNKNOWN INDICATION
  13. PHENOBARBITAL TAB [Suspect]
     Indication: EPILEPSY
     Route: 048
     Dates: start: 19980101, end: 20041201
  14. PHENOBARBITAL TAB [Suspect]
     Route: 048
     Dates: start: 20120201, end: 20120202
  15. ESOMEPRAZOLE [Concomitant]
     Indication: PRODUCT USED FOR UNKNOWN INDICATION
  16. PERINDOPRIL ERBUMINE [Concomitant]
     Indication: PRODUCT USED FOR UNKNOWN INDICATION

REACTIONS (2)
  - FALL [None]
  - GRAND MAL CONVULSION [None]
